FAERS Safety Report 12602284 (Version 11)
Quarter: 2019Q1

REPORT INFORMATION
  Report Type: Spontaneous
  Country: US (occurrence: US)
  Receive Date: 20160728
  Receipt Date: 20190318
  Transmission Date: 20190417
  Serious: Yes (Hospitalization)
  Sender: FDA-Public Use
  Company Number: US-PFIZER INC-2016360805

PATIENT
  Age: 66 Year
  Sex: Female
  Weight: 69.4 kg

DRUGS (4)
  1. EFFEXOR XR [Concomitant]
     Active Substance: VENLAFAXINE HYDROCHLORIDE
     Indication: DEPRESSION
     Dosage: 150 MG, DAILY (1 DAILY 150)
     Route: 048
     Dates: start: 2004
  2. LYRICA [Suspect]
     Active Substance: PREGABALIN
     Indication: NERVE INJURY
     Dosage: 150 MG, 3X/DAY
     Dates: start: 2014
  3. LYRICA [Suspect]
     Active Substance: PREGABALIN
     Indication: BACK PAIN
  4. LYRICA [Suspect]
     Active Substance: PREGABALIN
     Indication: NEUROPATHY PERIPHERAL
     Dosage: 150 MG, 3X/DAY
     Route: 048

REACTIONS (9)
  - Intentional product misuse [Not Recovered/Not Resolved]
  - Overweight [Unknown]
  - Musculoskeletal disorder [Unknown]
  - Product dispensing error [Unknown]
  - Fall [Unknown]
  - Back disorder [Not Recovered/Not Resolved]
  - Body height decreased [Unknown]
  - Head injury [Unknown]
  - Proctalgia [Unknown]

NARRATIVE: CASE EVENT DATE: 201712
